FAERS Safety Report 7214635-4 (Version None)
Quarter: 2011Q1

REPORT INFORMATION
  Report Type: 
  Country: None (occurrence: None)
  Receive Date: 20110107
  Receipt Date: 20110103
  Transmission Date: 20110831
  Serious: Yes (Death)
  Sender: FDA-Public Use
  Company Number: US-B.I. PHARMACEUTICALS,INC./RIDGEFIELD-2011-DE-00077BY

PATIENT
  Age: 77 Year
  Sex: Female

DRUGS (10)
  1. BENZODIAZEPINE [Suspect]
     Route: 048
  2. LEVOTHYROXINE [Suspect]
     Route: 048
  3. CHLORDIAZEPOXIDE [Suspect]
     Route: 048
  4. SIMVASTATIN [Suspect]
     Route: 048
  5. SULFONYLUREA [Suspect]
     Route: 048
  6. DILTIAZEM [Suspect]
     Route: 048
  7. DOXAZOSIN [Suspect]
     Route: 048
  8. TELMISARTAN/HYDROCHLOROTHIAZIDE [Suspect]
     Route: 048
  9. LISINOPRIL [Suspect]
     Route: 048
  10. VENLAFAXINE [Suspect]
     Route: 048

REACTIONS (3)
  - CARDIAC ARREST [None]
  - RESPIRATORY ARREST [None]
  - TOXICITY TO VARIOUS AGENTS [None]
